FAERS Safety Report 5814128-2 (Version None)
Quarter: 2008Q3

REPORT INFORMATION
  Report Type: 
  Country: None (occurrence: None)
  Receive Date: 20080717
  Receipt Date: 20080702
  Transmission Date: 20090109
  Serious: Yes (Hospitalization)
  Sender: FDA-Public Use
  Company Number: NL-GENENTECH-251614

PATIENT
  Sex: Male
  Weight: 77.5 kg

DRUGS (1)
  1. RITUXIMAB [Suspect]
     Indication: B-CELL LYMPHOMA
     Dosage: 375 MG/M2, Q8W
     Route: 042
     Dates: start: 20060619

REACTIONS (2)
  - FEBRILE NEUTROPENIA [None]
  - VIRAL INFECTION [None]
